FAERS Safety Report 15526084 (Version 3)
Quarter: 2019Q1

REPORT INFORMATION
  Report Type: Spontaneous
  Country: JP (occurrence: JP)
  Receive Date: 20181018
  Receipt Date: 20190204
  Transmission Date: 20190417
  Serious: Yes (Hospitalization, Other)
  Sender: FDA-Public Use
  Company Number: JP-ELI_LILLY_AND_COMPANY-JP201810006533

PATIENT
  Age: 37 Year
  Sex: Male
  Weight: 74 kg

DRUGS (7)
  1. HUMULIN R [Suspect]
     Active Substance: INSULIN HUMAN
     Indication: FULMINANT TYPE 1 DIABETES MELLITUS
     Dosage: UNK
     Route: 041
     Dates: start: 20180923, end: 20181002
  2. MEROPENEM. [Concomitant]
     Active Substance: MEROPENEM
     Indication: PERITONITIS
     Dosage: 0.5 G, BID
     Route: 041
     Dates: start: 20180923, end: 20181002
  3. MIRACLID [Concomitant]
     Active Substance: ULINASTATIN
     Indication: PANCREATITIS ACUTE
     Dosage: 50000 IU, DAILY
     Route: 041
     Dates: start: 20180923, end: 20181002
  4. DIGESTIVE ENZYME [Concomitant]
     Active Substance: UNSPECIFIED INGREDIENT
     Indication: PANCREATITIS ACUTE
     Dosage: 1 DF, TID
     Route: 048
     Dates: start: 20181003
  5. LANTUS [Concomitant]
     Active Substance: INSULIN GLARGINE
     Indication: FULMINANT TYPE 1 DIABETES MELLITUS
     Dosage: 10 IU, DAILY
     Route: 058
     Dates: start: 20180929
  6. HUMALOG [Suspect]
     Active Substance: INSULIN LISPRO
     Indication: FULMINANT TYPE 1 DIABETES MELLITUS
     Dosage: 3 IU, TID
     Route: 058
     Dates: start: 20181003, end: 20181010
  7. LANSOPRAZOLE. [Suspect]
     Active Substance: LANSOPRAZOLE
     Indication: PANCREATITIS ACUTE
     Dosage: 15 MG, DAILY
     Route: 048
     Dates: start: 20181003, end: 20181005

REACTIONS (2)
  - Ketoacidosis [Recovered/Resolved]
  - Hepatic function abnormal [Recovered/Resolved]

NARRATIVE: CASE EVENT DATE: 20180929
